FAERS Safety Report 16822232 (Version 1)
Quarter: 2019Q4

REPORT INFORMATION
  Report Type: Spontaneous
  Country: US (occurrence: US)
  Receive Date: 20190918
  Receipt Date: 20190918
  Transmission Date: 20200122
  Serious: Yes (Other)
  Sender: FDA-Public Use
  Company Number: None

PATIENT
  Age: 86 Year
  Sex: Female
  Weight: 66.6 kg

DRUGS (18)
  1. FUROSEMIDE. [Concomitant]
     Active Substance: FUROSEMIDE
  2. DAILY VITES [Concomitant]
  3. SPIRONOLACTONE. [Concomitant]
     Active Substance: SPIRONOLACTONE
  4. IPRATROPIUM BROMIDE NASAL SPRAY [Concomitant]
     Active Substance: IPRATROPIUM BROMIDE
  5. SOTALOL. [Concomitant]
     Active Substance: SOTALOL
  6. ASPIRIN 81MG [Concomitant]
     Active Substance: ASPIRIN
  7. ZOLPIDEM [Concomitant]
     Active Substance: ZOLPIDEM TARTRATE
  8. ACETAMINOPHEN. [Concomitant]
     Active Substance: ACETAMINOPHEN
  9. LOSARTAN. [Concomitant]
     Active Substance: LOSARTAN
  10. SERTRALINE [Concomitant]
     Active Substance: SERTRALINE HYDROCHLORIDE
  11. VITAMIN B COMPLEX [Concomitant]
     Active Substance: CYANOCOBALAMIN\DEXPANTHENOL\NIACINAMIDE\PYRIDOXINE HYDROCHLORIDE\RIBOFLAVIN 5^-PHOSPHATE SODIUM\THIAMINE HYDROCHLORIDE\VITAMIN B COMPLEX
  12. FASLODEX [Concomitant]
     Active Substance: FULVESTRANT
  13. PRAVASTATIN. [Concomitant]
     Active Substance: PRAVASTATIN
  14. IBRANCE [Suspect]
     Active Substance: PALBOCICLIB
     Indication: BREAST CANCER
     Dosage: ?          OTHER FREQUENCY:QDX21DAYS, 7D OFF;?
     Route: 048
     Dates: start: 20190508
  15. CETIRIZINE [Concomitant]
     Active Substance: CETIRIZINE HYDROCHLORIDE
  16. FLUTICASONE NASAL SPRAY [Concomitant]
     Active Substance: FLUTICASONE
  17. GABAPENTIN. [Concomitant]
     Active Substance: GABAPENTIN
  18. PSYLLIUM FIBER [Concomitant]

REACTIONS (3)
  - Bladder neoplasm surgery [None]
  - Blood count abnormal [None]
  - Therapy cessation [None]
